FAERS Safety Report 16763262 (Version 2)
Quarter: 2020Q2

REPORT INFORMATION
  Report Type: Spontaneous
  Country: US (occurrence: US)
  Receive Date: 20190902
  Receipt Date: 20200401
  Transmission Date: 20200713
  Serious: Yes (Other)
  Sender: FDA-Public Use
  Company Number: US-GILEAD-2019-0425716

PATIENT
  Age: 25 Year
  Sex: Male

DRUGS (18)
  1. PENICILLIN G BENZATHINE [Concomitant]
     Active Substance: PENICILLIN G BENZATHINE
  2. ROCEPHIN [Concomitant]
     Active Substance: CEFTRIAXONE SODIUM
  3. TRUVADA [Suspect]
     Active Substance: EMTRICITABINE\TENOFOVIR DISOPROXIL FUMARATE
     Indication: PROPHYLAXIS AGAINST HIV INFECTION
     Dosage: 1 DOSAGE FORM
     Route: 048
     Dates: start: 20150915, end: 20160815
  4. NAPROXEN. [Concomitant]
     Active Substance: NAPROXEN
  5. BICILLIN L A [Concomitant]
  6. BACTRIM [Concomitant]
     Active Substance: SULFAMETHOXAZOLE\TRIMETHOPRIM
  7. AZITHROMYCIN ANHYDROUS. [Concomitant]
     Active Substance: AZITHROMYCIN ANHYDROUS
  8. BACLOFEN. [Concomitant]
     Active Substance: BACLOFEN
  9. MULTIVITAMIN + MINERAL [Concomitant]
     Active Substance: MINERALS\VITAMINS
  10. KEFLEX [Concomitant]
     Active Substance: CEPHALEXIN
  11. ZESTORETIC [Concomitant]
     Active Substance: HYDROCHLOROTHIAZIDE\LISINOPRIL
  12. TRUVADA [Suspect]
     Active Substance: EMTRICITABINE\TENOFOVIR DISOPROXIL FUMARATE
     Indication: HIV INFECTION
     Dosage: 1 DOSAGE FORM, QD
     Route: 048
     Dates: start: 2012, end: 2015
  13. TRUVADA [Suspect]
     Active Substance: EMTRICITABINE\TENOFOVIR DISOPROXIL FUMARATE
     Dosage: 1 DOSAGE FORM
     Route: 048
     Dates: start: 20161012, end: 20190720
  14. DESCOVY [Concomitant]
     Active Substance: EMTRICITABINE\TENOFOVIR ALAFENAMIDE FUMARATE
  15. LISINOPRIL/HCTZ [Concomitant]
     Active Substance: HYDROCHLOROTHIAZIDE\LISINOPRIL
  16. CEFTRIAXONE. [Concomitant]
     Active Substance: CEFTRIAXONE
  17. MORPHINE [Concomitant]
     Active Substance: MORPHINE
  18. DOXYCYCLINE. [Concomitant]
     Active Substance: DOXYCYCLINE

REACTIONS (10)
  - Anhedonia [Unknown]
  - Hand fracture [Recovered/Resolved]
  - Bone density decreased [Unknown]
  - Tooth loss [Not Recovered/Not Resolved]
  - Chronic kidney disease [Unknown]
  - Emotional distress [Unknown]
  - Economic problem [Unknown]
  - Foot fracture [Recovered/Resolved]
  - Anxiety [Unknown]
  - Pain [Unknown]

NARRATIVE: CASE EVENT DATE: 2013
